FAERS Safety Report 8476342-X (Version None)
Quarter: 2012Q2

REPORT INFORMATION
  Report Type: 
  Country: None (occurrence: None)
  Receive Date: 20120619
  Receipt Date: 20120605
  Transmission Date: 20120825
  Serious: Yes (Other)
  Sender: FDA-Public Use
  Company Number: FR-1192592

PATIENT
  Sex: Male

DRUGS (5)
  1. EFFEXOR [Concomitant]
  2. MIRTAZAPINE [Concomitant]
  3. TRAVATAN [Suspect]
     Indication: OPEN ANGLE GLAUCOMA
     Dosage: (OPHTHALMIC)
     Route: 047
  4. XANAX [Concomitant]
  5. AZOPT [Suspect]
     Indication: OPEN ANGLE GLAUCOMA
     Dosage: (OPHTHALMIC)
     Route: 047

REACTIONS (2)
  - CONDITION AGGRAVATED [None]
  - DEPRESSION [None]
